FAERS Safety Report 5819491-4 (Version None)
Quarter: 2008Q3

REPORT INFORMATION
  Report Type: 
  Country: None (occurrence: None)
  Receive Date: 20080718
  Receipt Date: 20080708
  Transmission Date: 20090109
  Serious: Yes (Life-Threatening)
  Sender: FDA-Public Use
  Company Number: 002070

PATIENT
  Age: 62 Year
  Sex: Male

DRUGS (7)
  1. BUSULFEX [Suspect]
     Indication: STEM CELL TRANSPLANT
     Dosage: 30 ML, INTRAVENOUS
     Route: 042
     Dates: start: 20071003, end: 20071006
  2. FLUDARABINE PHOSPHATE [Concomitant]
  3. VALPROATE SODIUM [Concomitant]
  4. MELPHALAN (MELPHALAN) [Concomitant]
  5. FILGRASTIM (FILGRASTIM) [Concomitant]
  6. TACROLIMUS [Concomitant]
  7. MYCOPHENOLATE MOFETIL [Concomitant]

REACTIONS (7)
  - ANOREXIA [None]
  - DIARRHOEA [None]
  - ENTEROCOCCAL SEPSIS [None]
  - MALAISE [None]
  - NAUSEA [None]
  - STOMATITIS [None]
  - TREATMENT FAILURE [None]
